FAERS Safety Report 6522337-2 (Version None)
Quarter: 2009Q4

REPORT INFORMATION
  Report Type: 
  Country: None (occurrence: None)
  Receive Date: 20091230
  Receipt Date: 20091224
  Transmission Date: 20100525
  Serious: Yes (Hospitalization)
  Sender: FDA-Public Use
  Company Number: B0620209A

PATIENT
  Sex: Female

DRUGS (8)
  1. AUGMENTIN '125' [Suspect]
     Indication: ESCHERICHIA URINARY TRACT INFECTION
     Dosage: 1G THREE TIMES PER DAY
     Route: 048
     Dates: start: 20091109, end: 20091115
  2. LOVENOX [Suspect]
     Indication: PULMONARY EMBOLISM
     Route: 058
     Dates: start: 20091112, end: 20091118
  3. ATHYMIL [Suspect]
     Indication: DEPRESSION
     Dosage: 30MG PER DAY
     Route: 048
     Dates: start: 19910101, end: 20091118
  4. LASILIX FAIBLE [Suspect]
     Dosage: 20MG PER DAY
     Route: 048
     Dates: start: 20091014, end: 20091106
  5. MODOPAR [Concomitant]
     Indication: PARKINSON'S DISEASE
     Dosage: 125MG THREE TIMES PER DAY
     Route: 048
     Dates: start: 20060101, end: 20091118
  6. NEXIUM [Concomitant]
     Route: 065
     Dates: end: 20091116
  7. RULID [Concomitant]
     Dosage: 500MG TWICE PER DAY
     Route: 065
     Dates: start: 20091112
  8. PREVISCAN [Concomitant]
     Route: 065
     Dates: start: 20091112

REACTIONS (3)
  - AGRANULOCYTOSIS [None]
  - PHLEBITIS [None]
  - PULMONARY EMBOLISM [None]
